FAERS Safety Report 7391805-6 (Version None)
Quarter: 2011Q2

REPORT INFORMATION
  Report Type: 
  Country: None (occurrence: None)
  Receive Date: 20110404
  Receipt Date: 20110321
  Transmission Date: 20111010
  Serious: Yes (Death, Other)
  Sender: FDA-Public Use
  Company Number: FR-ROCHE-766715

PATIENT
  Age: 17 Year
  Sex: Female
  Weight: 60 kg

DRUGS (15)
  1. MORPHINE [Concomitant]
  2. KETAMINE HCL [Concomitant]
  3. VALACICLOVIR [Concomitant]
  4. OMEPRAZOLE [Concomitant]
  5. HYDROXYZINE [Concomitant]
  6. CORTICOSTEROIDS [Suspect]
     Indication: IMMUNOSUPPRESSION
     Route: 042
  7. ACETAMINOPHEN [Concomitant]
     Dosage: UP TO 3600MG/ DAY ALSO AS NEEDED.
  8. FUROSEMIDE [Concomitant]
  9. AMFOTERICIN B [Concomitant]
  10. MYCOPHENOLATE MOFETIL [Interacting]
     Indication: IMMUNOSUPPRESSION
     Route: 042
  11. CYCLOSPORINE [Suspect]
     Indication: IMMUNOSUPPRESSION
     Route: 042
  12. CIPROFLOXACIN [Interacting]
     Route: 042
  13. GENTAMICIN [Concomitant]
  14. ALIZAPRIDE [Concomitant]
  15. SODIUM BICARBONATE [Concomitant]
     Dosage: MOUTH WASHES.

REACTIONS (4)
  - DRUG INTERACTION [None]
  - GRAFT VERSUS HOST DISEASE [None]
  - DIARRHOEA [None]
  - PYREXIA [None]
